FAERS Safety Report 23971109 (Version 1)
Quarter: 2024Q2

REPORT INFORMATION
  Report Type: Spontaneous
  Country: TR (occurrence: TR)
  Receive Date: 20240613
  Receipt Date: 20240613
  Transmission Date: 20240716
  Serious: Yes (Other)
  Sender: FDA-Public Use
  Company Number: TR-SUN PHARMACEUTICAL INDUSTRIES LTD-2024R1-450681

PATIENT
  Age: 34 Month
  Sex: Male

DRUGS (2)
  1. OSELTAMIVIR [Interacting]
     Active Substance: OSELTAMIVIR
     Indication: Product used for unknown indication
     Dosage: 30 MILLIGRAM, BID
     Route: 065
  2. RISPERIDONE [Interacting]
     Active Substance: RISPERIDONE
     Indication: Behaviour disorder
     Dosage: 0.25 MILLIGRAM, BID
     Route: 065

REACTIONS (4)
  - Sedation [Unknown]
  - Drug interaction [Unknown]
  - Somnolence [Unknown]
  - Stupor [Unknown]
